FAERS Safety Report 8469264-1 (Version None)
Quarter: 2012Q2

REPORT INFORMATION
  Report Type: 
  Country: None (occurrence: None)
  Receive Date: 20120620
  Receipt Date: 20120605
  Transmission Date: 20120825
  Serious: Yes (Hospitalization, Other)
  Sender: FDA-Public Use
  Company Number: 2012P1040636

PATIENT
  Age: 58 Year
  Sex: Female

DRUGS (3)
  1. CARBOPLATIN [Concomitant]
  2. PACLITAXEL [Concomitant]
  3. RANITIDINE HCL [Suspect]
     Indication: PREMEDICATION
     Dosage: 50 MG;QD;IV
     Route: 042
     Dates: start: 20120514

REACTIONS (5)
  - PARKINSONISM [None]
  - RASH [None]
  - INJECTION SITE VESICLES [None]
  - HYPOAESTHESIA [None]
  - ILEUS PARALYTIC [None]
